FAERS Safety Report 14936495 (Version 1)
Quarter: 2018Q2

REPORT INFORMATION
  Report Type: Spontaneous
  Country: FR (occurrence: FR)
  Receive Date: 20180525
  Receipt Date: 20180525
  Transmission Date: 20180711
  Serious: Yes (Other)
  Sender: FDA-Public Use
  Company Number: FR-MERCK KGAA-2048422

PATIENT
  Age: 61 Year
  Sex: Male

DRUGS (1)
  1. NOVOTHYROX [Suspect]
     Active Substance: LEVOTHYROXINE SODIUM
     Indication: PRODUCT USED FOR UNKNOWN INDICATION

REACTIONS (10)
  - Facial paralysis [None]
  - Anxiety [None]
  - Fatigue [None]
  - Disturbance in attention [None]
  - Muscle spasms [None]
  - Headache [None]
  - Social avoidant behaviour [None]
  - Hyperhidrosis [None]
  - Sexual dysfunction [None]
  - Erectile dysfunction [None]

NARRATIVE: CASE EVENT DATE: 2017
